FAERS Safety Report 10761102 (Version 3)
Quarter: 2016Q4

REPORT INFORMATION
  Report Type: Spontaneous
  Country: JP (occurrence: JP)
  Receive Date: 20150204
  Receipt Date: 20161220
  Transmission Date: 20170206
  Serious: Yes (Death, Hospitalization)
  Sender: FDA-Public Use
  Company Number: JP-MALLINCKRODT-T201501002

PATIENT
  Age: 54 Year
  Sex: Male
  Weight: 55 kg

DRUGS (22)
  1. METHADONE [Suspect]
     Active Substance: METHADONE HYDROCHLORIDE
     Dosage: 5 MG (10 MG DAILY DOSE)
     Route: 048
     Dates: start: 20150123, end: 20150125
  2. URSODEOXYCHOLIC ACID [Concomitant]
     Active Substance: URSODIOL
     Dosage: 300 MG
     Route: 048
     Dates: start: 20100531, end: 20160508
  3. SULPIRIDE [Concomitant]
     Active Substance: SULPIRIDE
     Dosage: 50 MG
     Route: 048
     Dates: end: 20150417
  4. METHADONE [Suspect]
     Active Substance: METHADONE HYDROCHLORIDE
     Dosage: 5 MG (15 MG DAILY DOSE)
     Route: 048
     Dates: start: 20141110, end: 20141117
  5. METHADONE [Suspect]
     Active Substance: METHADONE HYDROCHLORIDE
     Dosage: 5 MG (15 MG DAILY DOSE)
     Route: 048
     Dates: start: 20150126, end: 20150814
  6. METHADONE [Suspect]
     Active Substance: METHADONE HYDROCHLORIDE
     Dosage: 5 MG (10 MG DAILY DOSE)
     Route: 048
     Dates: start: 20150814, end: 20160108
  7. TAKEPRON [Concomitant]
     Active Substance: LANSOPRAZOLE
     Indication: PROPHYLAXIS
     Dosage: 15 MG, (UNK)
     Route: 048
     Dates: start: 20131010, end: 20160508
  8. TAPENTA [Concomitant]
     Active Substance: TAPENTADOL HYDROCHLORIDE
     Indication: ANALGESIC THERAPY
     Dosage: 100 MG
     Route: 048
     Dates: start: 20160307, end: 20160508
  9. OXINORM [Concomitant]
     Active Substance: OXYCODONE HYDROCHLORIDE
     Dosage: 2.5-5 MG, P.R.N.
     Route: 048
     Dates: start: 20141106
  10. BAYASPIRIN [Concomitant]
     Active Substance: ASPIRIN
     Dosage: 100 MG
     Route: 048
     Dates: start: 20121203, end: 20160508
  11. REMERON [Concomitant]
     Active Substance: MIRTAZAPINE
     Dosage: 15 MG
     Route: 048
     Dates: end: 20150417
  12. CYMBALTA [Concomitant]
     Active Substance: DULOXETINE HYDROCHLORIDE
     Indication: ANALGESIC THERAPY
     Dosage: 50 MG
     Route: 048
     Dates: start: 20160120, end: 20160307
  13. LOXOPROFEN [Concomitant]
     Active Substance: LOXOPROFEN
     Dosage: 120 MG
     Route: 048
     Dates: start: 20111207, end: 20160508
  14. LYRICA [Concomitant]
     Active Substance: PREGABALIN
     Dosage: 300 MG
     Route: 048
     Dates: start: 20111207, end: 20141112
  15. MAGMITT [Concomitant]
     Active Substance: MAGNESIUM OXIDE
     Dosage: 990 MG
     Route: 048
     Dates: end: 20160508
  16. RIVOTRIL [Concomitant]
     Active Substance: CLONAZEPAM
     Dosage: 1 MG
     Route: 048
     Dates: end: 20160508
  17. WARFARIN [Concomitant]
     Active Substance: WARFARIN
     Dosage: 3.5 MG
     Route: 048
     Dates: start: 20121203, end: 20160508
  18. BROTIZOLAM [Concomitant]
     Active Substance: BROTIZOLAM
     Dosage: 0.25 MG
     Route: 048
     Dates: end: 20150417
  19. METHADONE [Suspect]
     Active Substance: METHADONE HYDROCHLORIDE
     Indication: CANCER PAIN
     Dosage: 5 MG (10 MG DAILY DOSE)
     Route: 048
     Dates: start: 20141107, end: 20141109
  20. DEPAS [Concomitant]
     Active Substance: ETIZOLAM
     Dosage: 1 MG
     Route: 048
     Dates: end: 20160508
  21. METHADONE [Suspect]
     Active Substance: METHADONE HYDROCHLORIDE
     Dosage: 5 MG (20 MG DAILY DOSE)
     Route: 048
     Dates: start: 20160108, end: 20160508
  22. QUETIAPINE. [Concomitant]
     Active Substance: QUETIAPINE
     Dosage: 2.5 MG
     Route: 048
     Dates: end: 20150417

REACTIONS (3)
  - Rectosigmoid cancer recurrent [Fatal]
  - Depression [Recovering/Resolving]
  - Somnolence [Recovering/Resolving]

NARRATIVE: CASE EVENT DATE: 20141113
